FAERS Safety Report 15290214 (Version 3)
Quarter: 2018Q4

REPORT INFORMATION
  Report Type: Spontaneous
  Country: DE (occurrence: DE)
  Receive Date: 20180817
  Receipt Date: 20181210
  Transmission Date: 20190204
  Serious: Yes (Hospitalization, Other)
  Sender: FDA-Public Use
  Company Number: DE-TEVA-2018-DE-941953

PATIENT
  Age: 78 Year
  Sex: Female
  Weight: 65 kg

DRUGS (3)
  1. VALSARTAN ABZ 80 MG FILMTABLETTEN [Suspect]
     Active Substance: VALSARTAN
     Indication: HYPERTENSION
     Dosage: 80 MILLIGRAM DAILY;
     Route: 048
     Dates: start: 2016
  2. BISOPROLOL [Concomitant]
     Active Substance: BISOPROLOL
     Dosage: .5 DOSAGE FORMS DAILY; HALF TABLET PER DAY
  3. NITRENDIPIN ABZ [Concomitant]

REACTIONS (13)
  - Cholangiocarcinoma [Unknown]
  - Asthenia [Unknown]
  - Chromaturia [Unknown]
  - Renal failure [Unknown]
  - Blood pressure decreased [Unknown]
  - Abscess [Unknown]
  - Sepsis [Unknown]
  - Lethargy [Unknown]
  - Gastrointestinal carcinoma [Unknown]
  - Weight decreased [Unknown]
  - Decreased appetite [Unknown]
  - Hepatocellular carcinoma [Unknown]
  - General physical health deterioration [Unknown]

NARRATIVE: CASE EVENT DATE: 201805
